FAERS Safety Report 16579177 (Version 1)
Quarter: 2019Q3

REPORT INFORMATION
  Report Type: Spontaneous
  Country: US (occurrence: US)
  Receive Date: 20190716
  Receipt Date: 20190716
  Transmission Date: 20191004
  Serious: No
  Sender: FDA-Public Use
  Company Number: US-GALDERMA-US19001156

PATIENT

DRUGS (3)
  1. DIFFERIN GEL [Suspect]
     Active Substance: ADAPALENE
     Dosage: 0.1%
     Route: 061
  2. CETAPHIL MOISTURIZING LOTION (DIFFERIN BALANCING MOISTURIZER) [Suspect]
     Active Substance: COSMETICS
     Indication: ACNE
     Route: 061
  3. DIFFERIN GEL [Suspect]
     Active Substance: ADAPALENE
     Indication: ACNE
     Dosage: 0.1%
     Route: 061

REACTIONS (7)
  - Acne [Unknown]
  - Skin irritation [Unknown]
  - Inappropriate schedule of product administration [Recovered/Resolved]
  - Skin texture abnormal [Unknown]
  - Skin fragility [Unknown]
  - Underdose [Recovered/Resolved]
  - Erythema [Not Recovered/Not Resolved]
